FAERS Safety Report 11688829 (Version 1)
Quarter: 2015Q4

REPORT INFORMATION
  Report Type: Spontaneous
  Country: US (occurrence: US)
  Receive Date: 20151102
  Receipt Date: 20151102
  Transmission Date: 20160304
  Serious: Yes (Death)
  Sender: FDA-Public Use
  Company Number: US-ROCHE-1653731

PATIENT
  Age: 72 Year
  Sex: Male
  Weight: 87.17 kg

DRUGS (1)
  1. ESBRIET [Suspect]
     Active Substance: PIRFENIDONE
     Indication: IDIOPATHIC PULMONARY FIBROSIS
     Dosage: 2403MG DAILY
     Route: 048
     Dates: start: 20150311

REACTIONS (1)
  - Death [Fatal]

NARRATIVE: CASE EVENT DATE: 20151012
